FAERS Safety Report 10292838 (Version 1)
Quarter: 2014Q3

REPORT INFORMATION
  Report Type: Spontaneous
  Country: US (occurrence: US)
  Receive Date: 20140710
  Receipt Date: 20140710
  Transmission Date: 20150326
  Serious: No
  Sender: FDA-Public Use
  Company Number: US-PURDUE-USA-2013-0108216

PATIENT
  Age: 54 Year
  Sex: Male
  Weight: 97.51 kg

DRUGS (7)
  1. OMEPRAZOLE. [Concomitant]
     Active Substance: OMEPRAZOLE
     Indication: GASTRITIS
     Dosage: 20 MG, UNK
     Dates: start: 20120123
  2. AMBIEN [Concomitant]
     Active Substance: ZOLPIDEM TARTRATE
     Indication: SLEEP APNOEA SYNDROME
     Dosage: 10 MG, UNK
     Dates: start: 20121029
  3. OXYCODONE HCL IR CAPSULES [Concomitant]
     Active Substance: OXYCODONE HYDROCHLORIDE
     Indication: GASTRITIS
     Dosage: 20 MG, UNK
     Dates: start: 20130729
  4. BUTRANS [Suspect]
     Active Substance: BUPRENORPHINE
     Indication: GASTRITIS
     Dosage: 20 MCG/HR, WEEKLY
     Route: 062
     Dates: start: 20121113, end: 20130729
  5. CARBAMAZEPINE. [Concomitant]
     Active Substance: CARBAMAZEPINE
     Indication: EPILEPSY
     Dosage: 200 MG, UNK
     Dates: start: 20120511
  6. CITALOPRAM HYDROBROMIDE. [Concomitant]
     Active Substance: CITALOPRAM HYDROBROMIDE
     Indication: DYSTHYMIC DISORDER
     Dosage: 40 MG, UNK
     Dates: start: 20120511
  7. ATIVAN [Concomitant]
     Active Substance: LORAZEPAM
     Indication: GASTRITIS
     Dosage: 1 MG, UNK
     Dates: start: 20130313

REACTIONS (8)
  - Drug administered at inappropriate site [Recovered/Resolved]
  - Application site pruritus [Recovered/Resolved]
  - Application site erosion [Recovered/Resolved]
  - Application site rash [Recovered/Resolved]
  - Product adhesion issue [Recovered/Resolved]
  - Wrong technique in drug usage process [Recovered/Resolved]
  - Application site irritation [Recovered/Resolved]
  - Application site pain [Recovered/Resolved]

NARRATIVE: CASE EVENT DATE: 20130615
